FAERS Safety Report 5982102-1 (Version None)
Quarter: 2008Q4

REPORT INFORMATION
  Report Type: 
  Country: None (occurrence: None)
  Receive Date: 20081202
  Receipt Date: 20081118
  Transmission Date: 20090506
  Serious: Yes (Hospitalization, Disabling, Other)
  Sender: FDA-Public Use
  Company Number: PHHY2008FR12325

PATIENT
  Age: 75 Year
  Sex: Female
  Weight: 65.0005 kg

DRUGS (8)
  1. LUCENTIS [Suspect]
     Indication: MACULAR DEGENERATION
     Dosage: 0.05 ML DAILY EY
     Route: 047
     Dates: start: 20080201, end: 20080201
  2. LUCENTIS [Suspect]
     Indication: MACULAR DEGENERATION
     Dosage: 0.05 ML DAILY EY
     Route: 047
     Dates: start: 20080105, end: 20080105
  3. LUCENTIS [Suspect]
     Indication: MACULAR DEGENERATION
     Dosage: 0.05 ML DAILY EY
     Route: 047
     Dates: start: 20071130, end: 20071130
  4. VISUDYNE [Suspect]
     Indication: MACULAR DEGENERATION
     Dates: start: 20071122, end: 20071122
  5. PROPRANOLOL [Concomitant]
  6. MONO-TILDIEM-SLOW RELEASE [Concomitant]
  7. SPIRONOLACTONE [Concomitant]
  8. PRAVASTATIN [Concomitant]

REACTIONS (5)
  - ASTHENIA [None]
  - FATIGUE [None]
  - INFLAMMATION [None]
  - MUSCULAR WEAKNESS [None]
  - RHINORRHOEA [None]
